FAERS Safety Report 4428745-8 (Version None)
Quarter: 2004Q3

REPORT INFORMATION
  Report Type: 
  Country: None (occurrence: None)
  Receive Date: 20040818
  Receipt Date: 20040408
  Transmission Date: 20050211
  Serious: No
  Sender: FDA-Public Use
  Company Number: US-BRISTOL-MYERS SQUIBB COMPANY-12556007

PATIENT
  Age: 53 Year
  Sex: Female
  Weight: 77 kg

DRUGS (6)
  1. TEQUIN [Suspect]
     Indication: CHOLECYSTECTOMY
     Route: 048
     Dates: start: 20040408, end: 20040408
  2. PERCOCET [Concomitant]
  3. DEMEROL [Concomitant]
  4. NEXIUM [Concomitant]
  5. LIPITOR [Concomitant]
  6. PREMARIN [Concomitant]

REACTIONS (2)
  - DIZZINESS [None]
  - VISION BLURRED [None]
